FAERS Safety Report 5764554-5 (Version None)
Quarter: 2008Q2

REPORT INFORMATION
  Report Type: 
  Country: None (occurrence: None)
  Receive Date: 20080610
  Receipt Date: 20080529
  Transmission Date: 20081010
  Serious: Yes (Hospitalization)
  Sender: FDA-Public Use
  Company Number: TR-PFIZER INC-2008046296

PATIENT
  Sex: Female

DRUGS (3)
  1. GABAPENTIN [Suspect]
     Route: 048
  2. PREDNISOLONE [Concomitant]
  3. PERINDOPRIL ERBUMINE/INDAPAMIDE HEMIHYDRATE [Concomitant]

REACTIONS (3)
  - BLOOD POTASSIUM DECREASED [None]
  - BLOOD SODIUM DECREASED [None]
  - SOMNOLENCE [None]
